FAERS Safety Report 8124886-2 (Version None)
Quarter: 2012Q1

REPORT INFORMATION
  Report Type: 
  Country: None (occurrence: None)
  Receive Date: 20120209
  Receipt Date: 20120202
  Transmission Date: 20120608
  Serious: Yes (Other)
  Sender: FDA-Public Use
  Company Number: DE-PFIZER INC-2012016750

PATIENT
  Age: 90 Year
  Sex: Female

DRUGS (3)
  1. AMIODARONE HCL [Suspect]
     Indication: ATRIAL FIBRILLATION
     Dosage: UNK
     Route: 065
     Dates: start: 20030101, end: 20050320
  2. ISOPTIN [Concomitant]
     Dosage: UNK
  3. MARCUMAR [Concomitant]
     Dosage: UNK

REACTIONS (3)
  - BRONCHIAL DISORDER [None]
  - PHOTOSENSITIVITY REACTION [None]
  - POLYNEUROPATHY [None]
